FAERS Safety Report 6626709-7 (Version None)
Quarter: 2010Q1

REPORT INFORMATION
  Report Type: 
  Country: None (occurrence: None)
  Receive Date: 20100308
  Receipt Date: 20100302
  Transmission Date: 20100710
  Serious: Yes (Hospitalization)
  Sender: FDA-Public Use
  Company Number: 2009EU004512

PATIENT
  Age: 45 Year
  Sex: Male

DRUGS (2)
  1. PROGRAF [Suspect]
     Indication: HEART TRANSPLANT
     Dosage: 2 MG, BID, ORAL
     Route: 048
     Dates: start: 20070228
  2. CERTICAN [Suspect]
     Indication: HEART TRANSPLANT
     Dosage: 2 DF, BID, ORAL
     Route: 048
     Dates: start: 20071212, end: 20091106

REACTIONS (13)
  - ANAL ULCER [None]
  - CARDIAC DISORDER [None]
  - DECREASED APPETITE [None]
  - HEART TRANSPLANT REJECTION [None]
  - LIVER DISORDER [None]
  - LUNG DISORDER [None]
  - MOUTH ULCERATION [None]
  - NON-HODGKIN'S LYMPHOMA [None]
  - RENAL DISORDER [None]
  - RENAL FAILURE CHRONIC [None]
  - SPLEEN DISORDER [None]
  - TONGUE ULCERATION [None]
  - UNEVALUABLE EVENT [None]
